FAERS Safety Report 8993083 (Version 1)
Quarter: 2013Q1

REPORT INFORMATION
  Report Type: Spontaneous
  Country: JP (occurrence: JP)
  Receive Date: 20130102
  Receipt Date: 20130102
  Transmission Date: 20140127
  Serious: Yes (Other)
  Sender: FDA-Public Use
  Company Number: JP-PFIZER INC-2012328745

PATIENT
  Sex: 0

DRUGS (2)
  1. ALDACTONE A [Suspect]
     Route: 048
  2. WARFARIN [Suspect]

REACTIONS (2)
  - Haemorrhagic diathesis [Unknown]
  - International normalised ratio decreased [Unknown]
